FAERS Safety Report 8065433-3 (Version None)
Quarter: 2011Q4

REPORT INFORMATION
  Report Type: 
  Country: None (occurrence: None)
  Receive Date: 20111221
  Receipt Date: 20110511
  Transmission Date: 20120403
  Serious: Yes (Hospitalization)
  Sender: FDA-Public Use
  Company Number: PHHY2011US39479

PATIENT
  Age: 56 Year
  Sex: Female

DRUGS (5)
  1. NSAID'S (NO INGREDIENTS/SUBSTANCES) [Concomitant]
  2. LISINOPRIL [Concomitant]
  3. LASIX [Concomitant]
  4. EXJADE [Suspect]
     Dosage: 30 MG/KG/DAY, ORAL ; 1500 MG, ORAL
     Route: 048
     Dates: start: 20110308
  5. EXJADE [Suspect]
     Dosage: 30 MG/KG/DAY, ORAL ; 1500 MG, ORAL
     Route: 048
     Dates: start: 20060223, end: 20110208

REACTIONS (1)
  - BLOOD CREATININE INCREASED [None]
